FAERS Safety Report 21770362 (Version 2)
Quarter: 2022Q4

REPORT INFORMATION
  Report Type: Report from Study
  Country: US (occurrence: US)
  Receive Date: 20221223
  Receipt Date: 20221226
  Transmission Date: 20230112
  Serious: No
  Sender: FDA-Public Use
  Company Number: US-ABBVIE-4211981

PATIENT
  Age: 72 Year
  Sex: Male

DRUGS (2)
  1. SKYRIZI [Suspect]
     Active Substance: RISANKIZUMAB-RZAA
     Indication: Psoriasis
     Dosage: WEEK 0,?LAST ADMINISTRATION DATE 2022
     Route: 058
     Dates: start: 20221118
  2. SKYRIZI [Suspect]
     Active Substance: RISANKIZUMAB-RZAA
     Dosage: FIRST ADMINISTRATION DATE 2022?WEEK 4, THEN EVERY 12 WEEKS.
     Route: 058

REACTIONS (5)
  - Productive cough [Unknown]
  - Chills [Unknown]
  - Fatigue [Unknown]
  - Blood pressure abnormal [Not Recovered/Not Resolved]
  - Erythema [Unknown]

NARRATIVE: CASE EVENT DATE: 20221220
